FAERS Safety Report 4618569-0 (Version None)
Quarter: 2005Q1

REPORT INFORMATION
  Report Type: 
  Country: None (occurrence: None)
  Receive Date: 20050323
  Receipt Date: 20050303
  Transmission Date: 20050727
  Serious: Yes (Life-Threatening, Hospitalization)
  Sender: FDA-Public Use
  Company Number: DE_050315369

PATIENT
  Age: 33 Year
  Sex: Male

DRUGS (3)
  1. ZYPREXA [Suspect]
     Indication: SCHIZOPHRENIA
     Dosage: 15 MG DAY
     Route: 048
     Dates: start: 20030801, end: 20031007
  2. ATOSIL                   (ISOPROMETHAZINE HYDROCHLORIDE) [Concomitant]
  3. LEXPONEX                 (CLONZAPINE) [Concomitant]

REACTIONS (6)
  - BRADYARRHYTHMIA [None]
  - ELECTROCARDIOGRAM QT PROLONGED [None]
  - MYOCARDITIS [None]
  - SYNCOPE [None]
  - TACHYARRHYTHMIA [None]
  - VENTRICULAR EXTRASYSTOLES [None]
